FAERS Safety Report 8553827-9 (Version None)
Quarter: 2012Q3

REPORT INFORMATION
  Report Type: 
  Country: None (occurrence: None)
  Receive Date: 20120719
  Receipt Date: 20120704
  Transmission Date: 20120928
  Serious: Yes (Other)
  Sender: FDA-Public Use
  Company Number: JP-2012-15635

PATIENT
  Age: 69 Year
  Sex: Female

DRUGS (1)
  1. SAMSCA [Suspect]
     Dosage: 1 MG MILLIGRAM(S), DAILY DOSE, ORAL
     Route: 048

REACTIONS (3)
  - HAEMODIALYSIS [None]
  - RENAL IMPAIRMENT [None]
  - FLUID RETENTION [None]
